FAERS Safety Report 9505777 (Version 1)
Quarter: 2013Q1

REPORT INFORMATION
  Report Type: Spontaneous
  Country: US (occurrence: None)
  Receive Date: 20130225
  Receipt Date: 20130225
  Transmission Date: 20140127
  Serious: No
  Sender: FDA-Public Use
  Company Number: 367254

PATIENT
  Age: 83 Year
  Sex: Male

DRUGS (1)
  1. VICTOZA [Suspect]
     Indication: TYPE 2 DIABETES MELLITUS
     Route: 058
     Dates: start: 20121107, end: 20121117

REACTIONS (5)
  - Pollakiuria [None]
  - Abdominal pain upper [None]
  - Blood glucose increased [None]
  - Nausea [None]
  - Vomiting [None]
